FAERS Safety Report 11302678 (Version 1)
Quarter: 2015Q3

REPORT INFORMATION
  Report Type: Spontaneous
  Country: US (occurrence: None)
  Receive Date: 20150723
  Receipt Date: 20150723
  Transmission Date: 20151125
  Serious: No
  Sender: FDA-Public Use
  Company Number: None

PATIENT
  Age: 46 Year
  Sex: Male
  Weight: 95.71 kg

DRUGS (12)
  1. LYRICA [Concomitant]
     Active Substance: PREGABALIN
  2. PROAIR HFA [Concomitant]
     Active Substance: ALBUTEROL SULFATE
  3. B VITAMIN SUPPLEMENT [Concomitant]
  4. ADVAIR HFA [Concomitant]
     Active Substance: FLUTICASONE PROPIONATE\SALMETEROL XINAFOATE
  5. DORZOLAMIDE HCL [Suspect]
     Active Substance: DORZOLAMIDE HYDROCHLORIDE
     Indication: GLAUCOMA
     Route: 047
     Dates: start: 20150722, end: 20150722
  6. TRILEPTAL [Concomitant]
     Active Substance: OXCARBAZEPINE
  7. PROSCAR [Concomitant]
     Active Substance: FINASTERIDE
  8. AMBIEN [Concomitant]
     Active Substance: ZOLPIDEM TARTRATE
  9. SINGULAIR [Concomitant]
     Active Substance: MONTELUKAST SODIUM
  10. PROZAC [Concomitant]
     Active Substance: FLUOXETINE HYDROCHLORIDE
  11. KLONOPIN [Concomitant]
     Active Substance: CLONAZEPAM
  12. ZYRTECH [Concomitant]

REACTIONS (4)
  - Ocular hyperaemia [None]
  - Fatigue [None]
  - Sleep talking [None]
  - Abnormal dreams [None]

NARRATIVE: CASE EVENT DATE: 20150722
